FAERS Safety Report 16314212 (Version 1)
Quarter: 2019Q2

REPORT INFORMATION
  Report Type: Spontaneous
  Country: DK (occurrence: DK)
  Receive Date: 20190515
  Receipt Date: 20190515
  Transmission Date: 20190711
  Serious: Yes (Life-Threatening, Hospitalization)
  Sender: FDA-Public Use
  Company Number: DK-ROCHE-2314514

PATIENT
  Age: 85 Year
  Sex: Female

DRUGS (5)
  1. CENTYL MITE MED KALIUMKLORID [Concomitant]
     Indication: HYPERTENSION
     Dosage: 25+573 MG
     Route: 048
     Dates: start: 20160420
  2. ACETYLSALICYLIC ACID;MAGNESIUM [Concomitant]
     Indication: THROMBOSIS PROPHYLAXIS
     Route: 048
     Dates: start: 20160426
  3. RAMIPRIL. [Concomitant]
     Active Substance: RAMIPRIL
     Indication: HYPERTENSION
     Route: 065
     Dates: start: 20160429, end: 201904
  4. ACTILYSE [Suspect]
     Active Substance: ALTEPLASE
     Indication: THROMBOLYSIS
     Dosage: 0.9 MG/HR IN TOTAL ORDINATED 61 MG BASED ON WEIGHT
     Route: 042
     Dates: start: 20190423, end: 20190423
  5. KALIUMKLORID [Concomitant]
     Indication: MINERAL SUPPLEMENTATION
     Route: 048

REACTIONS (4)
  - Tongue haemorrhage [Recovering/Resolving]
  - Angioedema [Recovering/Resolving]
  - Swollen tongue [Recovering/Resolving]
  - Endotracheal intubation [Unknown]

NARRATIVE: CASE EVENT DATE: 20190423
